FAERS Safety Report 7410763-9 (Version None)
Quarter: 2011Q2

REPORT INFORMATION
  Report Type: 
  Country: None (occurrence: None)
  Receive Date: 20110413
  Receipt Date: 20110331
  Transmission Date: 20111010
  Serious: Yes (Hospitalization, Other)
  Sender: FDA-Public Use
  Company Number: US-ELI_LILLY_AND_COMPANY-US201002002459

PATIENT
  Sex: Female

DRUGS (8)
  1. HYDROCHLOROTHIAZIDE [Concomitant]
     Dosage: 25 MG, DAILY (1/D)
  2. ZOLPIDEM TARTRATE [Concomitant]
     Dosage: 10 MG, AS NEEDED
  3. TRAZODONE [Concomitant]
     Dosage: 50 MG, DAILY (1/D)
  4. FORTEO [Suspect]
     Indication: OSTEOPOROSIS
     Dosage: 20 UG, DAILY (1/D)
     Route: 065
     Dates: start: 20090801
  5. BENAZEPRIL HYDROCHLORIDE [Concomitant]
     Dosage: 40 MG, DAILY (1/D)
  6. SIMVASTATIN [Concomitant]
     Dosage: 40 MG, DAILY (1/D)
  7. AMLODIPINE BESYLATE [Concomitant]
     Dosage: 10 MG, DAILY (1/D)
  8. ASPIRIN [Concomitant]
     Dosage: 325 MG, DAILY (1/D)

REACTIONS (4)
  - INJECTION SITE INJURY [None]
  - HYPERTENSION [None]
  - BACK PAIN [None]
  - HYPOTENSION [None]
